FAERS Safety Report 23689009 (Version 1)
Quarter: 2024Q1

REPORT INFORMATION
  Report Type: Report from Study
  Country: US (occurrence: US)
  Receive Date: 20240329
  Receipt Date: 20240329
  Transmission Date: 20240410
  Serious: No
  Sender: FDA-Public Use
  Company Number: US-AstraZeneca-CH-00589195A

PATIENT
  Sex: Female

DRUGS (23)
  1. SOLIRIS [Suspect]
     Active Substance: ECULIZUMAB
     Indication: Myasthenia gravis
     Dosage: UNK
     Route: 065
  2. PREDNISONE [Concomitant]
     Active Substance: PREDNISONE
     Indication: Myasthenia gravis
     Dosage: UNK
     Route: 065
  3. HUMAN IMMUNOGLOBULIN G [Concomitant]
     Active Substance: HUMAN IMMUNOGLOBULIN G
     Indication: Myasthenia gravis
     Route: 042
  4. COLACE [Concomitant]
     Active Substance: DOCUSATE SODIUM
     Indication: Product used for unknown indication
     Dosage: 100 MILLIGRAM, BID, AS NEEDED
     Route: 048
     Dates: start: 20231026
  5. VOLTAREN [Concomitant]
     Active Substance: DICLOFENAC SODIUM
     Indication: Pain
     Dosage: 1 PERCENT, BID, AS NEEDED TO THE AFFECTED AREA
     Route: 061
     Dates: start: 20240221
  6. ESTRACE [Concomitant]
     Active Substance: ESTRADIOL
     Indication: Product used for unknown indication
     Dosage: 2 MILLIGRAM, QD
     Route: 048
     Dates: start: 20231211, end: 20240307
  7. PEPCID [Concomitant]
     Active Substance: FAMOTIDINE
     Indication: Product used for unknown indication
     Dosage: 40 MILLIGRAM, QHS
     Route: 048
     Dates: start: 20240109
  8. DIFLUCAN [Concomitant]
     Active Substance: FLUCONAZOLE
     Indication: Product used for unknown indication
     Dosage: 150 MILLIGRAM, SINGLE AND CAN REPEAT AFTER 7 DAYS IF NOT BETTER
     Route: 065
     Dates: start: 20230612
  9. NEURONTIN [Concomitant]
     Active Substance: GABAPENTIN
     Indication: Product used for unknown indication
     Dosage: 300 MILLIGRAM, TID, INCREASING DOSE
     Route: 048
     Dates: start: 20240201
  10. NORCO [Concomitant]
     Active Substance: ACETAMINOPHEN\HYDROCODONE BITARTRATE
     Indication: Product used for unknown indication
     Dosage: 10/325 MILLIGRAM, Q6H AS NEEDED
     Route: 048
     Dates: start: 20231103
  11. LEVSIN SL [Concomitant]
     Active Substance: HYOSCYAMINE SULFATE
     Indication: Product used for unknown indication
     Dosage: 0.125 MILLIGRAM, Q4H, AS NEEDED
     Route: 060
     Dates: start: 20240105
  12. MOTRIN [Concomitant]
     Active Substance: IBUPROFEN
     Indication: Product used for unknown indication
     Dosage: 800 MILLIGRAM, Q8H, AS NEEDED
     Route: 048
     Dates: start: 20240214
  13. ATIVAN [Concomitant]
     Active Substance: LORAZEPAM
     Indication: Product used for unknown indication
     Dosage: 1 MILLIGRAM, 1 TO 2 TABLETS, 30- TO 60 MINUTES BEFORE PROCEDURE
     Route: 065
     Dates: start: 20240221
  14. COZAAR [Concomitant]
     Active Substance: LOSARTAN POTASSIUM
     Indication: Product used for unknown indication
     Dosage: 100 MILLIGRAM, QD
     Route: 048
     Dates: start: 20231211
  15. PAMELOR [Concomitant]
     Active Substance: NORTRIPTYLINE HYDROCHLORIDE
     Indication: Product used for unknown indication
     Dosage: 10 MILLIGRAM, QHS
     Route: 048
     Dates: start: 20240212
  16. PAMELOR [Concomitant]
     Active Substance: NORTRIPTYLINE HYDROCHLORIDE
     Dosage: 10 MILLIGRAM, QHS
     Route: 048
     Dates: start: 20240213
  17. CREON [Concomitant]
     Active Substance: PANCRELIPASE AMYLASE\PANCRELIPASE LIPASE\PANCRELIPASE PROTEASE
     Indication: Product used for unknown indication
     Dosage: 36000 INTERNATIONAL UNIT, TID, WITH MEALS ONE CAP AT BEGINING AND ONE CAP DURING EACH MEAL
     Route: 048
     Dates: start: 20231229
  18. PROBIOTIC BLEND [Concomitant]
     Indication: Product used for unknown indication
     Dosage: UNK
     Route: 048
  19. ACIPHEX [Concomitant]
     Active Substance: RABEPRAZOLE SODIUM
     Indication: Product used for unknown indication
     Dosage: 20 MILLIGRAM, TID, 30 MINUTES BEFORE MEALS
     Route: 048
     Dates: start: 20240129
  20. IMITREX [Concomitant]
     Active Substance: SUMATRIPTAN SUCCINATE
     Indication: Migraine
     Dosage: 25 MILLIGRAM, SINGLE, AS NEEDED AT THE ONSET OF MIGRAINE MAY REPEAT 2 HOURS LATER
     Route: 048
     Dates: start: 20240110
  21. DESYREL [Concomitant]
     Active Substance: TRAZODONE HYDROCHLORIDE
     Indication: Product used for unknown indication
     Dosage: 50 MILLIGRAM, QHS
     Route: 048
  22. TRIDERM [Concomitant]
     Active Substance: TRIAMCINOLONE ACETONIDE
     Indication: Product used for unknown indication
     Dosage: 0.1 PERCENT, BID, TO AFFECTED AREAS
     Route: 061
     Dates: start: 20231011
  23. VYVGART [Concomitant]
     Active Substance: EFGARTIGIMOD ALFA-FCAB
     Indication: Product used for unknown indication
     Dosage: UNK
     Route: 065

REACTIONS (12)
  - Oropharyngeal discomfort [Unknown]
  - Drug ineffective [Unknown]
  - Diplopia [Unknown]
  - Dysphagia [Unknown]
  - Muscular weakness [Unknown]
  - Dysphonia [Unknown]
  - Anal incontinence [Unknown]
  - Speech disorder [Unknown]
  - Vision blurred [Unknown]
  - Urinary incontinence [Unknown]
  - Bone pain [Unknown]
  - Headache [Unknown]
